FAERS Safety Report 4625095-1 (Version None)
Quarter: 2005Q1

REPORT INFORMATION
  Report Type: 
  Country: None (occurrence: None)
  Receive Date: 20050325
  Receipt Date: 20050118
  Transmission Date: 20050727
  Serious: No
  Sender: FDA-Public Use
  Company Number: USA050188646

PATIENT
  Age: 67 Year
  Sex: Female

DRUGS (7)
  1. FORTEO [Suspect]
     Indication: OSTEOPOROSIS
     Dates: start: 20041201
  2. HYDROCODONE BITARTRATE [Concomitant]
  3. BUSPAR [Concomitant]
  4. OGEN [Concomitant]
  5. HYDROCHLOROTHIAZIDE [Concomitant]
  6. PLENDIL [Concomitant]
  7. NEURONTIN (GABAPENTIN PFIZER) [Concomitant]

REACTIONS (2)
  - GLOSSODYNIA [None]
  - NAUSEA [None]
